FAERS Safety Report 9897306 (Version 2)
Quarter: 2014Q3

REPORT INFORMATION
  Report Type: Report from Study
  Country: US (occurrence: US)
  Receive Date: 20140214
  Receipt Date: 20140829
  Transmission Date: 20150326
  Serious: Yes (Hospitalization)
  Sender: FDA-Public Use
  Company Number: US-UCBSA-112549

PATIENT
  Age: 46 Year
  Sex: Female
  Weight: 68.4 kg

DRUGS (16)
  1. CIPRO [Concomitant]
     Active Substance: CIPROFLOXACIN HYDROCHLORIDE
     Indication: CROHN^S DISEASE
     Dates: start: 20120117
  2. PREDNISONE. [Concomitant]
     Active Substance: PREDNISONE
     Dates: start: 20131104
  3. PREDNISONE. [Concomitant]
     Active Substance: PREDNISONE
     Dates: start: 20120202, end: 20120816
  4. PREDNISONE. [Concomitant]
     Active Substance: PREDNISONE
     Dates: start: 20121216, end: 20130103
  5. VITAMIN D [Concomitant]
     Active Substance: CHOLECALCIFEROL
  6. MYCOPHENATE [Concomitant]
     Indication: CROHN^S DISEASE
     Dates: start: 2007
  7. CERTOLIZUMAB PEGOL CD [Suspect]
     Active Substance: CERTOLIZUMAB PEGOL
     Indication: CROHN^S DISEASE
     Dosage: 400 MG
     Dates: start: 20120211, end: 20120407
  8. CERTOLIZUMAB PEGOL CD [Suspect]
     Active Substance: CERTOLIZUMAB PEGOL
     Dosage: 200 MG
     Dates: start: 20120428
  9. DILAUDID [Concomitant]
     Active Substance: HYDROMORPHONE HYDROCHLORIDE
     Indication: PAIN
     Dates: start: 201312
  10. PREDNISONE. [Concomitant]
     Active Substance: PREDNISONE
     Indication: CROHN^S DISEASE
     Dates: start: 20080922, end: 20090202
  11. DIPHENOXYLATE WITH ATROPINNE [Concomitant]
     Indication: CROHN^S DISEASE
  12. TYLENOL [Concomitant]
     Active Substance: ACETAMINOPHEN
     Indication: PAIN
  13. TINIDAZOLE. [Concomitant]
     Active Substance: TINIDAZOLE
     Indication: CROHN^S DISEASE
     Dates: start: 20120130
  14. BUDESONIDE. [Concomitant]
     Active Substance: BUDESONIDE
     Indication: CROHN^S DISEASE
     Dates: start: 2007
  15. ACETAMINOPHEN. [Concomitant]
     Active Substance: ACETAMINOPHEN
     Indication: CROHN^S DISEASE
  16. MIRENA [Concomitant]
     Active Substance: LEVONORGESTREL

REACTIONS (2)
  - Anal fistula [Recovered/Resolved with Sequelae]
  - Perirectal abscess [Recovered/Resolved]

NARRATIVE: CASE EVENT DATE: 20131212
